FAERS Safety Report 4578875-5 (Version None)
Quarter: 2005Q1

REPORT INFORMATION
  Report Type: 
  Country: None (occurrence: None)
  Receive Date: 20050211
  Receipt Date: 20050124
  Transmission Date: 20050727
  Serious: Yes (Other)
  Sender: FDA-Public Use
  Company Number: GBWYE364724JAN05

PATIENT
  Age: 63 Year

DRUGS (2)
  1. ENBREL [Suspect]
     Indication: DRUG USE FOR UNKNOWN INDICATION
     Dosage: UNKNOWN
     Route: 058
  2. METHOTREXATE [Concomitant]
     Dosage: UNKNOWN

REACTIONS (2)
  - LUNG DISORDER [None]
  - LUNG INFECTION [None]
